FAERS Safety Report 17316690 (Version 1)
Quarter: 2020Q1

REPORT INFORMATION
  Report Type: Spontaneous
  Country: FR (occurrence: FR)
  Receive Date: 20200124
  Receipt Date: 20200124
  Transmission Date: 20200409
  Serious: Yes (Death)
  Sender: FDA-Public Use
  Company Number: NVSC2020FR016968

PATIENT
  Age: 66 Year
  Sex: Female

DRUGS (1)
  1. TRAMETINIB [Suspect]
     Active Substance: TRAMETINIB
     Indication: HISTIOCYTOSIS
     Dosage: 2 MG, QD
     Route: 065

REACTIONS (7)
  - Dry mouth [Unknown]
  - Product use in unapproved indication [Unknown]
  - Sepsis [Fatal]
  - Dermatitis acneiform [Recovering/Resolving]
  - Cerebral ischaemia [Fatal]
  - Lymphoedema [Unknown]
  - Endocarditis [Fatal]
